FAERS Safety Report 8090564 (Version 2)
Quarter: 2015Q3

REPORT INFORMATION
  Report Type: Spontaneous
  Country: CA (occurrence: CA)
  Receive Date: 20110815
  Receipt Date: 20150723
  Transmission Date: 20151125
  Serious: Yes (Other)
  Sender: FDA-Public Use
  Company Number: CA-PFIZER INC-2011183804

PATIENT
  Age: 50 Year
  Sex: Female

DRUGS (4)
  1. LYRICA [Suspect]
     Active Substance: PREGABALIN
     Indication: DIABETIC NEUROPATHY
     Dosage: 75 MG, 2X/DAY
     Dates: start: 20060504
  2. LYRICA [Suspect]
     Active Substance: PREGABALIN
     Dosage: 400 MG (75MG TO 150MG AT 6:30AM, 75MG TO 150MG AT 11:30AM AND 150MG AT 7PM)
  3. TYLENOL WITH CODEINE [Concomitant]
     Active Substance: ACETAMINOPHEN\CODEINE PHOSPHATE
     Dosage: UNK
  4. LYRICA [Suspect]
     Active Substance: PREGABALIN
     Dosage: 75MG IN THE MORNING AND 150MG IN THE EVENING

REACTIONS (3)
  - Spinal column injury [Unknown]
  - Drug ineffective [Unknown]
  - Drug tolerance increased [Unknown]

NARRATIVE: CASE EVENT DATE: 201101
